FAERS Safety Report 7104619-9 (Version None)
Quarter: 2010Q4

REPORT INFORMATION
  Report Type: 
  Country: None (occurrence: None)
  Receive Date: 20101109
  Receipt Date: 20101027
  Transmission Date: 20110411
  Serious: Yes (Death)
  Sender: FDA-Public Use
  Company Number: 011644

PATIENT
  Age: 68 Year
  Sex: Female

DRUGS (7)
  1. PLETAL [Suspect]
     Dosage: 200 MG, DAILY DOSE,
  2. INSULIN ASPART (INSULIN ASPART) [Concomitant]
  3. ATORVASTATIN (ATORVASTATIN) [Concomitant]
  4. DILTIAZEM [Concomitant]
  5. GALENIC HYDROCHLOROTHIAZIDE IRBESARTAN (HYDROCHLOROTHIAZIDE, IRBESARTA [Concomitant]
  6. GLUCOSAMINE SULFATE (GLUCOSAMINE SULFATE) [Concomitant]
  7. NATEGLINIDE [Concomitant]

REACTIONS (1)
  - CARDIAC ARREST [None]
